FAERS Safety Report 15905218 (Version 3)
Quarter: 2019Q3

REPORT INFORMATION
  Report Type: Spontaneous
  Country: US (occurrence: US)
  Receive Date: 20190204
  Receipt Date: 20190926
  Transmission Date: 20191004
  Serious: Yes (Other)
  Sender: FDA-Public Use
  Company Number: US-BAUSCH-BL-2019-003234

PATIENT
  Sex: Female
  Weight: 68.1 kg

DRUGS (2)
  1. SILIQ [Suspect]
     Active Substance: BRODALUMAB
     Indication: PSORIASIS
     Dosage: 1 INJECTION ONCE WEEKLY ON WEEKS 0, 1, AND 2
     Route: 058
     Dates: start: 201809, end: 2018
  2. SILIQ [Suspect]
     Active Substance: BRODALUMAB
     Dosage: ONCE EVERY 2 WEEKS
     Route: 058
     Dates: start: 2018, end: 20190129

REACTIONS (1)
  - Uveitis [Recovered/Resolved]
